FAERS Safety Report 4968157-1 (Version None)
Quarter: 2006Q2

REPORT INFORMATION
  Report Type: 
  Country: None (occurrence: None)
  Receive Date: 20060405
  Receipt Date: 20060328
  Transmission Date: 20061013
  Serious: Yes (Hospitalization)
  Sender: FDA-Public Use
  Company Number: GXKR2006TW01780

PATIENT
  Age: 69 Year
  Sex: Female

DRUGS (5)
  1. VENLAFAXINE (NGX) (VENLAFAXINE) [Suspect]
     Dosage: 37.5 MG, BID, UNKNOWN
  2. FLUOXETINE [Suspect]
     Dosage: 20 MG, QD, UNKNOWN
  3. TRAZODONE (NGX)(TRAZODONE) UNKNOWN [Suspect]
     Dosage: 150 MG, QD, UNKNOWN
  4. BUSPIRONE (NGX)(BUSPIRONE) [Suspect]
     Dosage: 20 MG, QD, UNKNOWN
  5. ZOLPIDEM TARTRATE [Concomitant]

REACTIONS (9)
  - ABNORMAL BEHAVIOUR [None]
  - DELUSION OF GRANDEUR [None]
  - DEPRESSED LEVEL OF CONSCIOUSNESS [None]
  - DISORIENTATION [None]
  - DRUG INTERACTION [None]
  - FLIGHT OF IDEAS [None]
  - MANIA [None]
  - SEROTONIN SYNDROME [None]
  - SLEEP DISORDER DUE TO GENERAL MEDICAL CONDITION, INSOMNIA TYPE [None]
